FAERS Safety Report 6572083-4 (Version None)
Quarter: 2010Q1

REPORT INFORMATION
  Report Type: 
  Country: None (occurrence: None)
  Receive Date: 20100201
  Receipt Date: 20100120
  Transmission Date: 20100710
  Serious: Yes (Hospitalization, Disabling, Other)
  Sender: FDA-Public Use
  Company Number: MC200900371

PATIENT

DRUGS (1)
  1. ANGIOMAX [Suspect]
     Indication: ANGIOPLASTY
     Dosage: 0.75 MG/KG, BOLUS, INTRAVENOUS; 1.75 MG/KG, HR, INTRVENOUS
     Route: 042

REACTIONS (11)
  - ARTERIOVENOUS MALFORMATION [None]
  - DEVICE OCCLUSION [None]
  - GASTROINTESTINAL HAEMORRHAGE [None]
  - HAEMATOMA [None]
  - HAEMOGLOBIN DECREASED [None]
  - OFF LABEL USE [None]
  - OSTEOMYELITIS [None]
  - PUNCTURE SITE DISCHARGE [None]
  - VASCULAR PSEUDOANEURYSM [None]
  - VASCULAR STENOSIS [None]
  - VESSEL PUNCTURE SITE HAEMATOMA [None]
